FAERS Safety Report 6989781-0 (Version None)
Quarter: 2010Q3

REPORT INFORMATION
  Report Type: 
  Country: None (occurrence: None)
  Receive Date: 20100916
  Receipt Date: 20100226
  Transmission Date: 20110219
  Serious: Yes (Death, Other)
  Sender: FDA-Public Use
  Company Number: DE-PFIZER INC-2009313427

PATIENT
  Age: 68 Year
  Sex: Male
  Weight: 86 kg

DRUGS (10)
  1. LYRICA [Suspect]
     Indication: NEURALGIA
     Dosage: 300 MG, SINGLE
     Route: 048
     Dates: start: 20091221, end: 20091221
  2. LYRICA [Suspect]
     Indication: PARAPLEGIA
     Dosage: 75 MG, 2X/DAY
     Route: 048
     Dates: start: 20091222, end: 20091223
  3. LYRICA [Suspect]
     Indication: SPINAL CORD PARALYSIS
  4. AMITRIPTYLINE [Concomitant]
     Dosage: 25 MG, 1X/DAY
     Dates: start: 20090803, end: 20100102
  5. DEXAMETHASONE [Concomitant]
     Dosage: 8 MG, 1X/DAY
     Dates: start: 20091214, end: 20100102
  6. NEXIUM [Concomitant]
     Dosage: 40 MG, 1X/DAY
     Dates: start: 20091201, end: 20100102
  7. MORPHINE SULFATE [Concomitant]
     Dosage: 60 MG/24 HOURS CONTINUOUSLY
     Dates: start: 20090915, end: 20100102
  8. METAMIZOLE SODIUM [Concomitant]
     Dosage: 3 G/24 HOURS
     Dates: start: 20090915, end: 20100102
  9. NULYTELY [Concomitant]
     Dosage: 3 X 1 BAG DAILY
     Dates: start: 20090915, end: 20100102
  10. CREON [Concomitant]
     Dosage: 2X25000 (UNIT NOT PROVIDED) THREE TIMES DAILY
     Dates: start: 20091119, end: 20100102

REACTIONS (6)
  - COLOUR BLINDNESS ACQUIRED [None]
  - DIPLOPIA [None]
  - HEADACHE [None]
  - NEOPLASM PROGRESSION [None]
  - SOMNOLENCE [None]
  - VISUAL IMPAIRMENT [None]
